FAERS Safety Report 14272222 (Version 1)
Quarter: 2017Q4

REPORT INFORMATION
  Report Type: Spontaneous
  Country: ES (occurrence: ES)
  Receive Date: 20171212
  Receipt Date: 20171212
  Transmission Date: 20180321
  Serious: Yes (Other)
  Sender: FDA-Public Use
  Company Number: ES-MYLANLABS-2017M1076443

PATIENT
  Age: 46 Year
  Sex: Female

DRUGS (7)
  1. TRETINOIN. [Suspect]
     Active Substance: TRETINOIN
     Dosage: REGIME #1: INDUCTION THERAPY
  2. TRETINOIN. [Suspect]
     Active Substance: TRETINOIN
     Dosage: REGIME #2: THREE CYCLES OF CONSOLIDATION
  3. IDARUBICIN [Suspect]
     Active Substance: IDARUBICIN
     Dosage: REGIME #2: THREE CYCLES OF CONSOLIDATION
  4. IDARUBICIN [Suspect]
     Active Substance: IDARUBICIN
     Indication: ACUTE PROMYELOCYTIC LEUKAEMIA
     Dosage: REGIME #1: INDUCTION THERAPY
  5. METHOTREXATE. [Suspect]
     Active Substance: METHOTREXATE
     Indication: ACUTE PROMYELOCYTIC LEUKAEMIA
     Dosage: REGIME #3: MAINTENANCE THERAPY
  6. MERCAPTOPURINE. [Suspect]
     Active Substance: MERCAPTOPURINE
     Indication: ACUTE PROMYELOCYTIC LEUKAEMIA
     Dosage: REGIME #3: MAINTENANCE THERAPY
  7. TRETINOIN. [Suspect]
     Active Substance: TRETINOIN
     Indication: ACUTE PROMYELOCYTIC LEUKAEMIA
     Dosage: REGIME #3: MAINTENANCE THERAPY

REACTIONS (1)
  - Leukaemia recurrent [Recovered/Resolved]

NARRATIVE: CASE EVENT DATE: 2010
